FAERS Safety Report 20710497 (Version 3)
Quarter: 2022Q2

REPORT INFORMATION
  Report Type: Report from Study
  Country: CA (occurrence: CA)
  Receive Date: 20220414
  Receipt Date: 20220520
  Transmission Date: 20220721
  Serious: Yes (Other)
  Sender: FDA-Public Use
  Company Number: CA-SAMSUNG BIOEPIS-SB-2022-01463

PATIENT
  Age: 37 Year
  Sex: Female

DRUGS (2)
  1. RENFLEXIS [Suspect]
     Active Substance: INFLIXIMAB-ABDA
     Indication: Crohn^s disease
     Dosage: VIAL
     Route: 065
     Dates: start: 20210616, end: 20211209
  2. RENFLEXIS [Suspect]
     Active Substance: INFLIXIMAB-ABDA
     Dosage: VIAL
     Route: 065
     Dates: start: 20220114

REACTIONS (12)
  - Urticaria [Recovered/Resolved]
  - Flushing [Recovered/Resolved]
  - Crohn^s disease [Recovering/Resolving]
  - Pruritus [Recovered/Resolved]
  - Erythema [Recovered/Resolved]
  - Hypersensitivity [Not Recovered/Not Resolved]
  - Pharyngeal swelling [Unknown]
  - Throat irritation [Unknown]
  - Asthenia [Unknown]
  - Drug specific antibody [Unknown]
  - Drug ineffective [Not Recovered/Not Resolved]
  - Product use issue [Unknown]

NARRATIVE: CASE EVENT DATE: 20220114
